FAERS Safety Report 8871901 (Version 1)
Quarter: 2012Q4

REPORT INFORMATION
  Report Type: 
  Country: GB (occurrence: GB)
  Receive Date: 20121029
  Receipt Date: 20121029
  Transmission Date: 20130627
  Serious: Yes (Other)
  Sender: FDA-Public Use
  Company Number: GB-RANBAXY-2012R1-61213

PATIENT
  Age: 56 Year
  Sex: Male

DRUGS (7)
  1. AMOXICILLIN [Suspect]
     Indication: LOWER RESPIRATORY TRACT INFECTION
     Dosage: 250 mg, tid
     Route: 065
     Dates: start: 20120913, end: 20120914
  2. BUDESONIDE [Concomitant]
     Indication: ASTHMA
     Dosage: UNK
     Route: 065
  3. DICLOFENAC [Concomitant]
     Indication: PAIN
     Dosage: UNK
     Route: 065
  4. PARACETAMOL [Concomitant]
     Indication: PAIN
     Dosage: UNK
     Route: 065
  5. SALMETEROL [Concomitant]
     Indication: ASTHMA
     Dosage: UNK
     Route: 065
  6. RIVAROXABAN [Concomitant]
     Indication: PRODUCT USED FOR UNKNOWN INDICATION
     Dosage: UNK
     Route: 065
  7. VERAPAMIL [Concomitant]
     Indication: BLOOD PRESSURE
     Dosage: UNK
     Route: 065

REACTIONS (6)
  - Hypersensitivity [Recovered/Resolved]
  - Lip swelling [Recovered/Resolved]
  - Parosmia [Recovered/Resolved]
  - Swelling [Recovered/Resolved]
  - Swelling face [Recovered/Resolved]
  - Dysgeusia [Recovered/Resolved]
